FAERS Safety Report 9204522 (Version 1)
Quarter: 2013Q1

REPORT INFORMATION
  Report Type: Spontaneous
  Country: US (occurrence: None)
  Receive Date: 20120709
  Receipt Date: 20120709
  Transmission Date: 20140127
  Serious: Yes (Other)
  Sender: FDA-Public Use
  Company Number: PHHY201145029

PATIENT
  Sex: Male

DRUGS (3)
  1. GLEEVEC [Suspect]
     Indication: CHRONIC MYELOID LEUKAEMIA
     Dates: start: 2004, end: 2009
  2. GLEEVEC [Suspect]
     Dates: start: 2004, end: 2009
  3. SPRYCEL [Suspect]
     Route: 048
     Dates: start: 2009

REACTIONS (2)
  - Pleural effusion [None]
  - Drug ineffective [None]
